FAERS Safety Report 8593550-8 (Version None)
Quarter: 2012Q3

REPORT INFORMATION
  Report Type: 
  Country: None (occurrence: None)
  Receive Date: 20120814
  Receipt Date: 20120810
  Transmission Date: 20120928
  Serious: Yes (Hospitalization)
  Sender: FDA-Public Use
  Company Number: MX-BRISTOL-MYERS SQUIBB COMPANY-16651002

PATIENT
  Age: 53 Year
  Sex: Male
  Weight: 56 kg

DRUGS (6)
  1. FLUOROURACIL [Suspect]
     Indication: HEAD AND NECK CANCER
     Dosage: RECENT DOSE:13-MAY-12
     Route: 042
     Dates: start: 20120510
  2. ACETAMINOPHEN [Concomitant]
  3. FLUOROURACIL [Suspect]
     Indication: HEAD AND NECK CANCER
     Dosage: REG 1 MOST RECENT DOSE:10MAY12
     Route: 042
     Dates: start: 20120510
  4. TRAMADOL HCL [Concomitant]
  5. CISPLATIN [Suspect]
     Indication: HEAD AND NECK CANCER
     Dosage: MOST RECENT DOSE:10MAY12
     Route: 042
     Dates: start: 20120510
  6. SODIUM PICOSULFATE [Concomitant]

REACTIONS (1)
  - MUCOSAL INFLAMMATION [None]
